FAERS Safety Report 6015277-9 (Version None)
Quarter: 2008Q4

REPORT INFORMATION
  Report Type: 
  Country: None (occurrence: None)
  Receive Date: 20081219
  Receipt Date: 20081219
  Transmission Date: 20090506
  Serious: Yes (Other)
  Sender: FDA-Public Use
  Company Number: None

PATIENT
  Sex: Male
  Weight: 90.7194 kg

DRUGS (2)
  1. ABILIFY [Suspect]
     Indication: SCHIZOPHRENIA, PARANOID TYPE
     Dosage: 15 MG'S DAILY PO
     Route: 048
     Dates: start: 20060101, end: 20070101
  2. ABILIFY [Suspect]
     Indication: SCHIZOPHRENIA, PARANOID TYPE
     Dosage: 10 MG'S DAILY PO
     Route: 048
     Dates: start: 20070101, end: 20080101

REACTIONS (12)
  - ABDOMINAL DISCOMFORT [None]
  - ASTHENIA [None]
  - CONFUSIONAL STATE [None]
  - CONSTIPATION [None]
  - DIZZINESS [None]
  - DRY SKIN [None]
  - DYSPHAGIA [None]
  - MEMORY IMPAIRMENT [None]
  - NAUSEA [None]
  - POLLAKIURIA [None]
  - SELF-INJURIOUS IDEATION [None]
  - SOMNOLENCE [None]
